FAERS Safety Report 6284586-0 (Version None)
Quarter: 2009Q3

REPORT INFORMATION
  Report Type: 
  Country: None (occurrence: None)
  Receive Date: 20090727
  Receipt Date: 20090717
  Transmission Date: 20100115
  Serious: Yes (Other)
  Sender: FDA-Public Use
  Company Number: HU-ABBOTT-09P-076-0585938-00

PATIENT
  Age: 40 Year
  Sex: Female

DRUGS (1)
  1. REDUCTIL [Suspect]
     Indication: OBESITY
     Route: 048
     Dates: start: 20060101

REACTIONS (1)
  - PANIC ATTACK [None]
